FAERS Safety Report 5204020-9 (Version None)
Quarter: 2007Q1

REPORT INFORMATION
  Report Type: 
  Country: None (occurrence: None)
  Receive Date: 20070110
  Receipt Date: 20051020
  Transmission Date: 20070707
  Serious: No
  Sender: FDA-Public Use
  Company Number: US-BRISTOL-MYERS SQUIBB COMPANY-13117825

PATIENT
  Age: 51 Year
  Sex: Male

DRUGS (3)
  1. ABILIFY [Suspect]
  2. RISPERDAL [Suspect]
  3. ZYPREXA [Suspect]

REACTIONS (2)
  - DIABETES MELLITUS [None]
  - WEIGHT INCREASED [None]
